FAERS Safety Report 12850984 (Version 1)
Quarter: 2016Q4

REPORT INFORMATION
  Report Type: Spontaneous
  Country: KR (occurrence: KR)
  Receive Date: 20161015
  Receipt Date: 20161015
  Transmission Date: 20170207
  Serious: Yes (Other)
  Sender: FDA-Public Use
  Company Number: KR-MACLEODS PHARMACEUTICALS US LTD-MAC2016003451

PATIENT

DRUGS (3)
  1. CELECOXIB. [Suspect]
     Active Substance: CELECOXIB
     Indication: ARTHRALGIA
     Dosage: 400 MG, QD
     Route: 065
  2. METHOTREXATE. [Concomitant]
     Active Substance: METHOTREXATE
     Indication: RHEUMATOID ARTHRITIS
     Dosage: UNK
     Route: 065
  3. PREDNISONE. [Concomitant]
     Active Substance: PREDNISONE
     Indication: RHEUMATOID ARTHRITIS
     Dosage: UNK (LOW-DOSE)
     Route: 065

REACTIONS (10)
  - Skin lesion [Recovered/Resolved]
  - Pain in extremity [Recovered/Resolved]
  - Rash erythematous [Recovered/Resolved]
  - Condition aggravated [Recovered/Resolved]
  - Acute febrile neutrophilic dermatosis [Recovered/Resolved]
  - Burning sensation [Recovered/Resolved]
  - Pyrexia [Recovered/Resolved]
  - Pain [Recovered/Resolved]
  - Skin plaque [Recovered/Resolved]
  - Blister [Recovered/Resolved]
